FAERS Safety Report 7647597-6 (Version None)
Quarter: 2011Q3

REPORT INFORMATION
  Report Type: 
  Country: None (occurrence: None)
  Receive Date: 20110801
  Receipt Date: 20110718
  Transmission Date: 20111222
  Serious: Yes (Hospitalization)
  Sender: FDA-Public Use
  Company Number: FR-UCBSA-037361

PATIENT
  Sex: Female
  Weight: 70 kg

DRUGS (20)
  1. KETOPROFEN [Suspect]
     Dosage: 1 OR 2 TIMES DAILY
     Route: 048
  2. CALCIDOSE D3 [Concomitant]
  3. FOLIC ACID [Concomitant]
  4. FUMAFER [Concomitant]
  5. POTASSIUM CHLORIDE [Concomitant]
  6. ATORVASTATIN CALCIUM [Concomitant]
  7. ACETAMINOPHEN [Concomitant]
  8. MORPHINE SULFATE [Concomitant]
  9. ACUPAN [Concomitant]
  10. SECTRAL [Concomitant]
  11. IRBESARTAN [Concomitant]
  12. LASIX [Concomitant]
  13. REMICADE [Suspect]
     Route: 041
     Dates: start: 20110420, end: 20110531
  14. NEURONTIN [Concomitant]
  15. IXEL [Concomitant]
  16. CALCIDOSE D3 [Concomitant]
  17. ZOLPIDEM [Concomitant]
  18. CIMZIA [Suspect]
     Route: 058
     Dates: start: 20101220, end: 20110228
  19. PREDNISONE [Concomitant]
  20. NEXIUM [Concomitant]

REACTIONS (7)
  - GRANULOMA [None]
  - HYPERHIDROSIS [None]
  - LYMPHOCYTOSIS [None]
  - ANAEMIA [None]
  - VASCULITIS NECROTISING [None]
  - SUBCUTANEOUS NODULE [None]
  - DYSPNOEA [None]
